FAERS Safety Report 9512078 (Version 2)
Quarter: 2013Q4

REPORT INFORMATION
  Report Type: Spontaneous
  Country: IT (occurrence: None)
  Receive Date: 20130906
  Receipt Date: 20131023
  Transmission Date: 20140711
  Serious: Yes (Hospitalization)
  Sender: FDA-Public Use
  Company Number: AUR-APL-2013-07343

PATIENT
  Age: 49 Year
  Sex: Female

DRUGS (2)
  1. LEVOFLOXACIN [Suspect]
     Indication: PNEUMONITIS
     Route: 048
     Dates: start: 20130617, end: 20130627
  2. CLARITHROMYCIN [Suspect]
     Indication: PNEUMONITIS
     Route: 048
     Dates: start: 20130623, end: 20130627

REACTIONS (3)
  - Pruritus [None]
  - Erythema [None]
  - Rash maculo-papular [None]
